FAERS Safety Report 5361836-6 (Version None)
Quarter: 2007Q2

REPORT INFORMATION
  Report Type: 
  Country: None (occurrence: None)
  Receive Date: 20070619
  Receipt Date: 20070611
  Transmission Date: 20071010
  Serious: Yes (Other)
  Sender: FDA-Public Use
  Company Number: PHMT2007CA01390

PATIENT
  Sex: Male

DRUGS (1)
  1. LAMISIL [Suspect]
     Indication: FUNGAL SKIN INFECTION
     Route: 048

REACTIONS (5)
  - BACK PAIN [None]
  - DIARRHOEA [None]
  - DRUG INEFFECTIVE [None]
  - LOCAL SWELLING [None]
  - NECK PAIN [None]
